FAERS Safety Report 14529227 (Version 1)
Quarter: 2018Q1

REPORT INFORMATION
  Report Type: Spontaneous
  Country: US (occurrence: US)
  Receive Date: 20180213
  Receipt Date: 20180213
  Transmission Date: 20180509
  Serious: Yes (Hospitalization)
  Sender: FDA-Public Use
  Company Number: None

PATIENT
  Age: 64 Year
  Sex: Female
  Weight: 115 kg

DRUGS (1)
  1. TERBINAFINE. [Suspect]
     Active Substance: TERBINAFINE
     Indication: ONYCHOMYCOSIS
     Route: 048
     Dates: start: 20170428, end: 20170609

REACTIONS (10)
  - Abdominal pain upper [None]
  - Constipation [None]
  - Abdominal distension [None]
  - Alanine aminotransferase increased [None]
  - Dyspepsia [None]
  - Diarrhoea [None]
  - Aspartate aminotransferase increased [None]
  - Hepatotoxicity [None]
  - Vomiting [None]
  - Blood alkaline phosphatase increased [None]

NARRATIVE: CASE EVENT DATE: 20170627
